FAERS Safety Report 10962626 (Version 1)
Quarter: 2015Q1

REPORT INFORMATION
  Report Type: Spontaneous
  Country: US (occurrence: US)
  Receive Date: 20150327
  Receipt Date: 20150327
  Transmission Date: 20150721
  Serious: Yes (Death)
  Sender: FDA-Public Use
  Company Number: US-TEVA-549788USA

PATIENT
  Sex: Male
  Weight: 99.88 kg

DRUGS (5)
  1. FENTANYL. [Concomitant]
     Active Substance: FENTANYL
  2. ACTIQ [Suspect]
     Active Substance: FENTANYL CITRATE
     Indication: BREAKTHROUGH PAIN
     Route: 048
  3. LEVEMIR [Concomitant]
     Active Substance: INSULIN DETEMIR
  4. VENOFER [Concomitant]
     Active Substance: IRON SUCROSE
  5. OXYCODONE W/PARACETAMOL [Concomitant]
     Active Substance: ACETAMINOPHEN\OXYCODONE HYDROCHLORIDE

REACTIONS (5)
  - Gastric cancer [Fatal]
  - Protein total decreased [Recovered/Resolved]
  - Blood albumin decreased [Recovered/Resolved]
  - Malnutrition [Recovered/Resolved]
  - Red blood cell count decreased [Recovered/Resolved]
